FAERS Safety Report 5530638-X (Version None)
Quarter: 2007Q4

REPORT INFORMATION
  Report Type: 
  Country: None (occurrence: None)
  Receive Date: 20071130
  Receipt Date: 20071127
  Transmission Date: 20080405
  Serious: Yes (Hospitalization)
  Sender: FDA-Public Use
  Company Number: B0495391B

PATIENT
  Age: 50 Year
  Sex: Female
  Weight: 56 kg

DRUGS (3)
  1. LAPATINIB [Suspect]
     Dosage: 1250MG PER DAY
     Route: 048
     Dates: start: 20070430
  2. CAPECITABINE [Suspect]
     Dosage: 1650MG PER DAY
     Route: 048
     Dates: start: 20070430
  3. OXYCONTIN [Concomitant]
     Indication: BONE PAIN
     Dosage: 10MG TWICE PER DAY
     Route: 048
     Dates: start: 20070911

REACTIONS (2)
  - PELVIC VENOUS THROMBOSIS [None]
  - THROMBOSIS [None]
